FAERS Safety Report 5207661-8 (Version None)
Quarter: 2007Q1

REPORT INFORMATION
  Report Type: 
  Country: None (occurrence: None)
  Receive Date: 20070112
  Receipt Date: 20070104
  Transmission Date: 20070707
  Serious: Yes (Other)
  Sender: FDA-Public Use
  Company Number: US-PFIZER INC-2006152351

PATIENT
  Sex: Male
  Weight: 90.7 kg

DRUGS (6)
  1. LIPITOR [Suspect]
     Indication: HYPERLIPIDAEMIA
     Route: 048
     Dates: start: 20061205, end: 20061206
  2. GLUCOPHAGE [Concomitant]
  3. DIABETA [Concomitant]
  4. LISINOPRIL [Concomitant]
     Route: 048
  5. AVANDIA [Concomitant]
     Route: 048
  6. QUININE SULFATE [Concomitant]
     Route: 048

REACTIONS (11)
  - ABASIA [None]
  - ANOREXIA [None]
  - BONE PAIN [None]
  - FALL [None]
  - HEADACHE [None]
  - MALAISE [None]
  - MUSCLE DISORDER [None]
  - MYALGIA [None]
  - NASOPHARYNGITIS [None]
  - TREMOR [None]
  - URINARY INCONTINENCE [None]
